FAERS Safety Report 7962284-2 (Version None)
Quarter: 2011Q4

REPORT INFORMATION
  Report Type: 
  Country: None (occurrence: None)
  Receive Date: 20111207
  Receipt Date: 20111202
  Transmission Date: 20120403
  Serious: Yes (Other)
  Sender: FDA-Public Use
  Company Number: PHHY2010JP36521

PATIENT
  Age: 61 Year
  Sex: Male

DRUGS (7)
  1. CINOBEZILE [Concomitant]
     Dosage: 200 MG, UNK
     Route: 048
     Dates: start: 20101124, end: 20101215
  2. TASIGNA [Suspect]
     Dosage: 400 MG, DAILY
     Route: 048
     Dates: start: 20100402
  3. WARFARIN SODIUM [Concomitant]
     Dosage: 1 MG, UNK
     Route: 048
     Dates: start: 20101111
  4. PROPAFENONE HYDROCHLORIDE [Concomitant]
     Dosage: 300 MG, UNK
     Route: 048
     Dates: start: 20101216
  5. SUNRYTHM [Concomitant]
     Dosage: 150 MG, UNK
     Route: 048
     Dates: start: 20101111, end: 20101124
  6. TASIGNA [Suspect]
     Indication: CHRONIC MYELOID LEUKAEMIA
     Dosage: 400 MG, DAILY
     Route: 048
     Dates: start: 20091113, end: 20100120
  7. TASIGNA [Suspect]
     Dosage: 600 MG, DAILY
     Route: 048
     Dates: start: 20100121, end: 20100401

REACTIONS (3)
  - LIPASE INCREASED [None]
  - GAMMA-GLUTAMYLTRANSFERASE INCREASED [None]
  - ALOPECIA [None]
